FAERS Safety Report 17131056 (Version 12)
Quarter: 2021Q1

REPORT INFORMATION
  Report Type: Spontaneous
  Country: CA (occurrence: CA)
  Receive Date: 20191209
  Receipt Date: 20210317
  Transmission Date: 20210419
  Serious: Yes (Life-Threatening, Hospitalization, Other)
  Sender: FDA-Public Use
  Company Number: CA-CELLTRION INC.-2019CA025091

PATIENT

DRUGS (23)
  1. INFLECTRA [Suspect]
     Active Substance: INFLIXIMAB-DYYB
     Dosage: 5 MG/KG EVERY 7 WEEKS
     Route: 042
     Dates: start: 20200423
  2. DIPHENHYDRAMINE. [Concomitant]
     Active Substance: DIPHENHYDRAMINE
     Dosage: 50 MG, UNK
     Route: 048
     Dates: start: 20200825, end: 20200825
  3. INFLECTRA [Suspect]
     Active Substance: INFLIXIMAB-DYYB
     Dosage: 5 MG/KG EVERY 7 WEEKS
     Route: 042
     Dates: start: 20191010, end: 20200611
  4. INFLECTRA [Suspect]
     Active Substance: INFLIXIMAB-DYYB
     Dosage: 5 MG/KG EVERY 7 WEEKS
     Route: 042
     Dates: start: 20200423
  5. INFLECTRA [Suspect]
     Active Substance: INFLIXIMAB-DYYB
     Dosage: 5 MG/KG EVERY 7 WEEKS
     Route: 042
     Dates: start: 20200611, end: 20200611
  6. INFLECTRA [Suspect]
     Active Substance: INFLIXIMAB-DYYB
     Dosage: 5 MG/KG EVERY 7 WEEKS
     Route: 042
     Dates: start: 20200825
  7. INFLECTRA [Suspect]
     Active Substance: INFLIXIMAB-DYYB
     Dosage: 5 MG/KG EVERY 7 WEEKS
     Route: 042
     Dates: start: 20201013
  8. INFLECTRA [Suspect]
     Active Substance: INFLIXIMAB-DYYB
     Dosage: 5 MG/KG EVERY 7 WEEKS
     Route: 042
     Dates: start: 20200423
  9. HYDROCORTISONE. [Concomitant]
     Active Substance: HYDROCORTISONE
     Dosage: 100 MG, UNK
     Route: 042
     Dates: start: 20200825, end: 20200825
  10. INFLECTRA [Suspect]
     Active Substance: INFLIXIMAB-DYYB
     Indication: SARCOIDOSIS
     Dosage: 5 MG/KG EVERY 7 WEEKS
     Route: 042
     Dates: start: 20191010, end: 20200611
  11. INFLECTRA [Suspect]
     Active Substance: INFLIXIMAB-DYYB
     Dosage: 5 MG/KG EVERY 7 WEEKS
     Route: 042
     Dates: start: 20191010, end: 20200611
  12. INFLECTRA [Suspect]
     Active Substance: INFLIXIMAB-DYYB
     Dosage: 5 MG/KG EVERY 7 WEEKS
     Route: 042
     Dates: start: 20200423
  13. INFLECTRA [Suspect]
     Active Substance: INFLIXIMAB-DYYB
     Dosage: 5 MG/KG EVERY 7 WEEKS
     Route: 042
     Dates: start: 20201201, end: 20201201
  14. INFLECTRA [Suspect]
     Active Substance: INFLIXIMAB-DYYB
     Dosage: 5 MG/KG EVERY 7 WEEKS
     Route: 042
     Dates: start: 20201013
  15. INFLECTRA [Suspect]
     Active Substance: INFLIXIMAB-DYYB
     Dosage: 5 MG/KG EVERY 7 WEEKS
     Route: 042
     Dates: start: 20201201, end: 20201201
  16. INFLECTRA [Suspect]
     Active Substance: INFLIXIMAB-DYYB
     Dosage: 5 MG/KG EVERY 7 WEEKS
     Route: 042
     Dates: start: 20191125
  17. INFLECTRA [Suspect]
     Active Substance: INFLIXIMAB-DYYB
     Dosage: 5 MG/KG EVERY 7 WEEKS
     Route: 042
     Dates: start: 20200611, end: 20200611
  18. INFLECTRA [Suspect]
     Active Substance: INFLIXIMAB-DYYB
     Dosage: 5 MG/KG EVERY 7 WEEKS
     Route: 042
     Dates: start: 20210121
  19. INFLECTRA [Suspect]
     Active Substance: INFLIXIMAB-DYYB
     Dosage: 5 MG/KG EVERY 7 WEEKS
     Route: 042
     Dates: start: 20210121
  20. ACETAMINOPHEN. [Concomitant]
     Active Substance: ACETAMINOPHEN
     Indication: PREMEDICATION
     Dosage: 1000 MG, UNK
  21. ACETAMINOPHEN. [Concomitant]
     Active Substance: ACETAMINOPHEN
     Dosage: 1000 MG, UNK
     Route: 048
     Dates: start: 20200825, end: 20200825
  22. DIPHENHYDRAMINE. [Concomitant]
     Active Substance: DIPHENHYDRAMINE
     Indication: PREMEDICATION
     Dosage: 50 MG, UNK
     Route: 048
  23. HYDROCORTISONE. [Concomitant]
     Active Substance: HYDROCORTISONE
     Indication: PREMEDICATION
     Dosage: 100 MG, UNK
     Route: 042

REACTIONS (12)
  - Radius fracture [Unknown]
  - Abdominal hernia [Unknown]
  - Drug effective for unapproved indication [Unknown]
  - Weight decreased [Unknown]
  - Intentional product use issue [Unknown]
  - Dizziness [Recovered/Resolved]
  - Toothache [Unknown]
  - Dyspnoea [Recovered/Resolved]
  - Nervousness [Recovered/Resolved]
  - Heart rate decreased [Unknown]
  - Off label use [Unknown]
  - Off label use [Unknown]

NARRATIVE: CASE EVENT DATE: 20191010
